FAERS Safety Report 16839605 (Version 9)
Quarter: 2020Q1

REPORT INFORMATION
  Report Type: Report from Study
  Country: CO (occurrence: CO)
  Receive Date: 20190923
  Receipt Date: 20200323
  Transmission Date: 20200409
  Serious: Yes (Hospitalization, Other)
  Sender: FDA-Public Use
  Company Number: CO-SA-2018SA298726

PATIENT
  Age: 48 Year
  Sex: Female

DRUGS (3)
  1. LEVOTHYROXINE. [Concomitant]
     Active Substance: LEVOTHYROXINE
     Indication: HYPOTHYROIDISM
     Dosage: 75 UG, QD
     Route: 048
  2. ALENDRONATE [Concomitant]
     Active Substance: ALENDRONATE SODIUM
     Indication: OSTEOPOROSIS
     Dosage: UNK UNK, Q8D
     Route: 048
  3. ALEMTUZUMAB [Suspect]
     Active Substance: ALEMTUZUMAB
     Indication: MULTIPLE SCLEROSIS
     Dosage: QD
     Route: 041
     Dates: start: 20180724, end: 20180726

REACTIONS (13)
  - Mouth haemorrhage [Recovered/Resolved]
  - Contusion [Recovered/Resolved]
  - Lymphocyte count decreased [Recovered/Resolved]
  - Dizziness [Recovered/Resolved]
  - Haematoma [Recovered/Resolved]
  - Leukocyturia [Not Recovered/Not Resolved]
  - Fatigue [Recovered/Resolved]
  - Petechiae [Recovered/Resolved]
  - Haematochezia [Recovered/Resolved]
  - Depressed mood [Recovered/Resolved]
  - Platelet count decreased [Not Recovered/Not Resolved]
  - Crystal urine present [Recovered/Resolved]
  - Blood thyroid stimulating hormone decreased [Recovered/Resolved]

NARRATIVE: CASE EVENT DATE: 20181025
